FAERS Safety Report 9920373 (Version 1)
Quarter: 2014Q1

REPORT INFORMATION
  Report Type: Spontaneous
  Country: BE (occurrence: BE)
  Receive Date: 20140224
  Receipt Date: 20140224
  Transmission Date: 20141002
  Serious: Yes (Life-Threatening)
  Sender: FDA-Public Use
  Company Number: CHPA2014BE002927

PATIENT
  Age: 15 Year
  Sex: Male
  Weight: 50 kg

DRUGS (2)
  1. EXCEDRYN [Suspect]
     Indication: HEADACHE
     Dosage: UNK
     Route: 048
     Dates: start: 201401
  2. ASPIRINE [Concomitant]
     Indication: HEADACHE
     Dosage: 500 MG, UNK
     Route: 048
     Dates: start: 201306

REACTIONS (4)
  - Swelling [Recovered/Resolved]
  - Pharyngeal oedema [Recovered/Resolved]
  - Hypersensitivity [Recovered/Resolved]
  - Drug administered to patient of inappropriate age [Unknown]
